FAERS Safety Report 23472501 (Version 4)
Quarter: 2024Q2

REPORT INFORMATION
  Report Type: Spontaneous
  Country: US (occurrence: US)
  Receive Date: 20240202
  Receipt Date: 20240527
  Transmission Date: 20240716
  Serious: Yes (Other)
  Sender: FDA-Public Use
  Company Number: US-BRISTOL-MYERS SQUIBB COMPANY-2024-017067

PATIENT
  Age: 81 Year
  Sex: Female

DRUGS (1)
  1. LENALIDOMIDE [Suspect]
     Active Substance: LENALIDOMIDE
     Indication: Plasma cell myeloma
     Dosage: TAKE 1 CAPSULE BY MOUTH EVERY DAY FOR 21 DAYS EVERY 28 DAYS. DO NOT BREAK, CHEW, OR OPEN CAPSULES
     Route: 048
     Dates: start: 20231030

REACTIONS (5)
  - Mental impairment [Unknown]
  - White blood cell count decreased [Recovered/Resolved]
  - Product dose omission in error [Unknown]
  - Memory impairment [Unknown]
  - Product dose omission issue [Recovered/Resolved]
